FAERS Safety Report 4304866-5 (Version None)
Quarter: 2004Q1

REPORT INFORMATION
  Report Type: 
  Country: None (occurrence: None)
  Receive Date: 20040226
  Receipt Date: 20040102
  Transmission Date: 20041129
  Serious: No
  Sender: FDA-Public Use
  Company Number: US-GLAXOSMITHKLINE-A0490961A

PATIENT
  Age: 38 Year
  Sex: Female
  Weight: 70.9 kg

DRUGS (5)
  1. WELLBUTRIN [Suspect]
  2. PROZAC [Concomitant]
     Dosage: 40MG PER DAY
  3. PREVACID [Concomitant]
     Dosage: 20MG PER DAY
  4. HEMOCYTE PLUS [Concomitant]
  5. ZYRTEC [Concomitant]
     Dosage: 10MG PER DAY

REACTIONS (1)
  - MUSCLE TWITCHING [None]
